FAERS Safety Report 4899295-X (Version None)
Quarter: 2006Q1

REPORT INFORMATION
  Report Type: 
  Country: None (occurrence: None)
  Receive Date: 20060131
  Receipt Date: 20060124
  Transmission Date: 20060701
  Serious: Yes (Hospitalization)
  Sender: FDA-Public Use
  Company Number: THQ2006A00096

PATIENT
  Age: 69 Year
  Sex: 0

DRUGS (4)
  1. LEUPROLIDE ACETATE [Suspect]
     Dosage: 22.5 MG (22.5 MG, 1 IN 3 M) INJECTION
     Dates: start: 20051116
  2. OMEPRAZOLE [Concomitant]
  3. CANDESARTAN (CILEXETIL (CANDESARTAN CILEXETIL) [Concomitant]
  4. TRAMADOL [Concomitant]

REACTIONS (1)
  - GOUT [None]
